FAERS Safety Report 13286630 (Version 1)
Quarter: 2017Q1

REPORT INFORMATION
  Report Type: Spontaneous
  Country: ES (occurrence: ES)
  Receive Date: 20170301
  Receipt Date: 20170301
  Transmission Date: 20170428
  Serious: Yes (Other)
  Sender: FDA-Public Use
  Company Number: ES-AMGEN-ESPSP2017031645

PATIENT
  Age: 79 Year
  Sex: Male

DRUGS (7)
  1. GELOCATIL [Concomitant]
     Active Substance: ACETAMINOPHEN
     Indication: PAIN
     Dosage: UNK, 3X/DAY
  2. ENBREL [Suspect]
     Active Substance: ETANERCEPT
     Indication: RHEUMATOID ARTHRITIS
     Dosage: 50 MG, WEEKLY (ON FRIDAYS)
     Route: 058
     Dates: start: 20090830
  3. BUDESONIDA [Concomitant]
     Indication: NASAL CONGESTION
     Dosage: 1 DF, 1X/DAY
  4. XALATAN [Concomitant]
     Active Substance: LATANOPROST
     Indication: INTRAOCULAR PRESSURE INCREASED
     Dosage: 1 GTT, 1X/DAY (AT NIGHT)
  5. DUODART [Concomitant]
     Active Substance: DUTASTERIDE\TAMSULOSIN
     Indication: PROSTATIC DISORDER
     Dosage: 1 DF, 1X/DAY
  6. ACOXXEL [Concomitant]
     Active Substance: ETORICOXIB
     Indication: PAIN
     Dosage: 1 DF, 1X/DAY
  7. METOJECT [Concomitant]
     Active Substance: METHOTREXATE SODIUM
     Indication: RHEUMATOID ARTHRITIS
     Dosage: 1 DF, WEEKLY (ON FRIDAYS)

REACTIONS (2)
  - Cataract [Unknown]
  - Condition aggravated [Unknown]

NARRATIVE: CASE EVENT DATE: 2009
